FAERS Safety Report 4483796-2 (Version None)
Quarter: 2004Q4

REPORT INFORMATION
  Report Type: 
  Country: None (occurrence: None)
  Receive Date: 20041022
  Receipt Date: 20041022
  Transmission Date: 20050328
  Serious: Yes (Hospitalization)
  Sender: FDA-Public Use
  Company Number: None

PATIENT
  Age: 60 Year
  Sex: Female
  Weight: 88 kg

DRUGS (7)
  1. LEVOFLOXACIN [Suspect]
     Indication: PNEUMONIA
     Dosage: 500MG Q DAY
     Dates: start: 20041006, end: 20041007
  2. BENAZEPRIL HCL [Suspect]
     Indication: HYPERTENSION
     Dosage: 20 MG Q DAY
     Dates: start: 19970101
  3. ALEVE [Concomitant]
  4. HYDROCHLOROTHIAZIDE [Concomitant]
  5. PREMARIN [Concomitant]
  6. LOPID [Concomitant]
  7. LORTAB [Concomitant]

REACTIONS (2)
  - PNEUMONIA [None]
  - SWOLLEN TONGUE [None]
